FAERS Safety Report 8833871 (Version 2)
Quarter: 2012Q4

REPORT INFORMATION
  Report Type: 
  Country: JP (occurrence: JP)
  Receive Date: 20121011
  Receipt Date: 20121101
  Transmission Date: 20130627
  Serious: Yes (Other)
  Sender: FDA-Public Use
  Company Number: JP-009507513-1210JPN002751

PATIENT
  Age: 65 Year
  Sex: Female

DRUGS (9)
  1. BONALON [Suspect]
     Indication: OSTEOPOROSIS
     Dosage: 35 mg, qw
     Route: 048
     Dates: start: 2008, end: 201109
  2. BONALON [Suspect]
     Dosage: 35 mg, qw
     Route: 048
     Dates: start: 20120412, end: 20120419
  3. PREDONINE [Suspect]
     Indication: SYSTEMIC LUPUS ERYTHEMATOSUS
     Dosage: 15 mg, qd
     Route: 048
  4. IMURAN (AZATHIOPRINE) [Concomitant]
     Indication: SYSTEMIC LUPUS ERYTHEMATOSUS
     Dosage: 50 mg, qd
  5. PARIET [Concomitant]
     Indication: PROPHYLAXIS AGAINST GASTROINTESTINAL ULCER
     Dosage: 10 mg, qd
     Route: 048
  6. CO DIO [Concomitant]
     Indication: HYPERTENSION
     Dosage: 1 DF, qd
     Route: 048
  7. METHYCOBAL [Concomitant]
     Indication: NEUROPATHY PERIPHERAL
     Dosage: 1500 Microgram, qd
     Route: 048
  8. URSO [Concomitant]
     Indication: AUTOIMMUNE HEPATITIS
     Dosage: 600 mg, qd
     Route: 048
  9. LOXONIN [Concomitant]
     Indication: ARTHRALGIA
     Dosage: 120 mg, qd
     Route: 048

REACTIONS (2)
  - Atypical femur fracture [Recovering/Resolving]
  - Atypical femur fracture [Recovering/Resolving]
